FAERS Safety Report 4523677-9 (Version None)
Quarter: 2004Q4

REPORT INFORMATION
  Report Type: 
  Country: None (occurrence: None)
  Receive Date: 20041210
  Receipt Date: 20041129
  Transmission Date: 20050328
  Serious: Yes (Other)
  Sender: FDA-Public Use
  Company Number: GBPFL-E-20040005

PATIENT
  Age: 68 Year
  Sex: Female

DRUGS (4)
  1. NAVELBINE [Suspect]
     Dosage: 25MGK CYCLIC
     Route: 042
     Dates: start: 20040215, end: 20040610
  2. HERCEPTIN [Suspect]
     Dosage: 2MGK CYCLIC
     Route: 042
     Dates: start: 20040215, end: 20040610
  3. DEXAMETHASONE [Concomitant]
  4. KYTRIL [Concomitant]

REACTIONS (1)
  - PULMONARY FIBROSIS [None]
